FAERS Safety Report 12138839 (Version 3)
Quarter: 2016Q4

REPORT INFORMATION
  Report Type: Report from Study
  Country: CN (occurrence: CN)
  Receive Date: 20160302
  Receipt Date: 20161007
  Transmission Date: 20170207
  Serious: Yes (Hospitalization)
  Sender: FDA-Public Use
  Company Number: CN-ASTRAZENECA-2015SF22353

PATIENT
  Age: 54 Year
  Sex: Male

DRUGS (12)
  1. INSULIN DETEMIR [Concomitant]
     Active Substance: INSULIN DETEMIR
     Indication: DIABETES MELLITUS
     Route: 058
     Dates: start: 20151130, end: 20151204
  2. GLIMEPIRIDE. [Concomitant]
     Active Substance: GLIMEPIRIDE
     Indication: DIABETES MELLITUS
     Route: 048
     Dates: start: 20151130, end: 20151215
  3. SHAH GLENN DEAN [Concomitant]
     Indication: DIABETES MELLITUS
     Route: 048
     Dates: start: 20151203, end: 20151215
  4. TICAGRELOR [Suspect]
     Active Substance: TICAGRELOR
     Indication: CARDIOVASCULAR EVENT PROPHYLAXIS
     Route: 048
     Dates: start: 20150522, end: 20151214
  5. SULFUR ACID [Concomitant]
     Indication: DIABETES MELLITUS
     Route: 048
     Dates: start: 20151127, end: 20151209
  6. INSULIN DETEMIR [Concomitant]
     Active Substance: INSULIN DETEMIR
     Indication: DIABETES MELLITUS
     Route: 058
     Dates: start: 20151127, end: 20151130
  7. PITAVASTATIN CALCIUM [Concomitant]
     Active Substance: PITAVASTATIN CALCIUM
     Indication: CORONARY ARTERY DISEASE
     Route: 042
     Dates: start: 20151128, end: 20151215
  8. ACARBOSE. [Concomitant]
     Active Substance: ACARBOSE
     Indication: DIABETES MELLITUS
     Route: 048
     Dates: start: 20151127, end: 20151215
  9. INSULIN DETEMIR [Concomitant]
     Active Substance: INSULIN DETEMIR
     Indication: DIABETES MELLITUS
     Route: 058
     Dates: start: 20151203, end: 20151215
  10. TICAGRELOR [Suspect]
     Active Substance: TICAGRELOR
     Indication: CARDIOVASCULAR EVENT PROPHYLAXIS
     Route: 048
     Dates: start: 20160526
  11. SHUXUENING [Concomitant]
     Active Substance: GINKGO
     Indication: CORONARY ARTERY DISEASE
     Route: 042
     Dates: start: 20151128, end: 20151209
  12. JIANG TANG WANIN [Concomitant]
     Indication: DIABETES MELLITUS
     Route: 048
     Dates: end: 20150803

REACTIONS (1)
  - Benign prostatic hyperplasia [Recovered/Resolved]

NARRATIVE: CASE EVENT DATE: 20151215
